FAERS Safety Report 5873601-1 (Version None)
Quarter: 2008Q3

REPORT INFORMATION
  Report Type: 
  Country: None (occurrence: None)
  Receive Date: 20080908
  Receipt Date: 20080905
  Transmission Date: 20090109
  Serious: No
  Sender: FDA-Public Use
  Company Number: IT-EISAI MEDICAL RESEARCH-E2020-03280-CLI-IT

PATIENT
  Sex: Male
  Weight: 81 kg

DRUGS (1)
  1. E2020-SR [Suspect]
     Indication: DEMENTIA ALZHEIMER'S TYPE
     Route: 048
     Dates: start: 20080807, end: 20080827

REACTIONS (2)
  - ATRIAL FIBRILLATION [None]
  - BRADYCARDIA [None]
